FAERS Safety Report 23258293 (Version 2)
Quarter: 2024Q1

REPORT INFORMATION
  Report Type: Spontaneous
  Country: KR (occurrence: KR)
  Receive Date: 20231204
  Receipt Date: 20240117
  Transmission Date: 20240410
  Serious: No
  Sender: FDA-Public Use
  Company Number: KR-PFIZER INC-PV202300186530

PATIENT

DRUGS (1)
  1. GENOTROPIN [Suspect]
     Active Substance: SOMATROPIN
     Dosage: 5.3 IU, 5 TIMES, 6 TIMES, 6 TIMES PER WEEK

REACTIONS (2)
  - Poor quality device used [Unknown]
  - Device leakage [Unknown]
